FAERS Safety Report 7119959-7 (Version None)
Quarter: 2010Q4

REPORT INFORMATION
  Report Type: 
  Country: None (occurrence: None)
  Receive Date: 20101123
  Receipt Date: 20101116
  Transmission Date: 20110411
  Serious: Yes (Hospitalization)
  Sender: FDA-Public Use
  Company Number: US-ABBOTT-09P-163-0589974-00

PATIENT
  Sex: Male
  Weight: 81.72 kg

DRUGS (3)
  1. HUMIRA [Suspect]
     Indication: CROHN'S DISEASE
     Route: 058
     Dates: start: 20070101
  2. FUROSEMIDE [Concomitant]
     Indication: HYPERTENSION
     Dates: start: 19830101
  3. CYANOCOBALAMIN [Concomitant]
     Indication: ANAEMIA

REACTIONS (1)
  - OESOPHAGEAL CANDIDIASIS [None]
